FAERS Safety Report 10953044 (Version 1)
Quarter: 2015Q1

REPORT INFORMATION
  Report Type: Spontaneous
  Country: US (occurrence: US)
  Receive Date: 20150325
  Receipt Date: 20150325
  Transmission Date: 20150721
  Serious: Yes (Death)
  Sender: FDA-Public Use
  Company Number: US-CIPLA LTD.-2015US02276

PATIENT

DRUGS (6)
  1. NAPROXEN. [Suspect]
     Active Substance: NAPROXEN
  2. TETRACYCLINE [Suspect]
     Active Substance: TETRACYCLINE
  3. GABAPENTIN. [Suspect]
     Active Substance: GABAPENTIN
  4. FLUOXETINE [Suspect]
     Active Substance: FLUOXETINE\FLUOXETINE HYDROCHLORIDE
  5. SERTRALINE [Suspect]
     Active Substance: SERTRALINE HYDROCHLORIDE
  6. ALLOPURINOL. [Suspect]
     Active Substance: ALLOPURINOL

REACTIONS (1)
  - Completed suicide [Fatal]
